FAERS Safety Report 13194676 (Version 1)
Quarter: 2017Q1

REPORT INFORMATION
  Report Type: Spontaneous
  Country: US (occurrence: US)
  Receive Date: 20170207
  Receipt Date: 20170207
  Transmission Date: 20170428
  Serious: No
  Sender: FDA-Public Use
  Company Number: US-JAZZ-2016-US-017574

PATIENT
  Age: 53 Year
  Sex: Female

DRUGS (3)
  1. PRIALT [Suspect]
     Active Substance: ZICONOTIDE ACETATE
     Dosage: 0.125 ?G, QH
     Route: 037
     Dates: start: 20160908
  2. PRIALT [Suspect]
     Active Substance: ZICONOTIDE ACETATE
     Indication: PAIN
     Dosage: 0.108 ?G, QH
     Route: 037
  3. DILAUDID [Suspect]
     Active Substance: HYDROMORPHONE HYDROCHLORIDE
     Indication: PAIN
     Dosage: UNK MG, QH
     Route: 037
     Dates: end: 20160620

REACTIONS (13)
  - Weight decreased [Unknown]
  - Diarrhoea [Recovered/Resolved]
  - Vomiting [Unknown]
  - Agitation [Unknown]
  - Insomnia [Unknown]
  - Device issue [Unknown]
  - Headache [Unknown]
  - Anxiety [Unknown]
  - Feeling jittery [Unknown]
  - Nausea [Unknown]
  - Nervousness [Unknown]
  - Tremor [Unknown]
  - Dizziness [Unknown]

NARRATIVE: CASE EVENT DATE: 201608
